FAERS Safety Report 8616858 (Version 3)
Quarter: 2012Q4

REPORT INFORMATION
  Report Type: 
  Country: JP (occurrence: JP)
  Receive Date: 20120615
  Receipt Date: 20121022
  Transmission Date: 20130627
  Serious: Yes (Other)
  Sender: FDA-Public Use
  Company Number: PHHY2012JP050963

PATIENT

DRUGS (4)
  1. NEORAL [Suspect]
     Dosage: (Maternal dose :150 mg, daily)
     Route: 064
  2. PREDNISOLONE [Suspect]
     Dosage: (Maternal dose :10 mg, daily)
     Route: 064
  3. PREDNISOLONE [Suspect]
     Dosage: (Maternal dose :20 mg, daily)
     Route: 064
  4. ETANERCEPT [Suspect]
     Dosage: (Maternal dose :25 mg, weekly)
     Route: 064

REACTIONS (3)
  - Foetal growth restriction [Unknown]
  - Interleukin level increased [Unknown]
  - Foetal exposure during pregnancy [Unknown]
